FAERS Safety Report 17933247 (Version 2)
Quarter: 2020Q3

REPORT INFORMATION
  Report Type: Report from Study
  Country: AU (occurrence: AU)
  Receive Date: 20200623
  Receipt Date: 20200701
  Transmission Date: 20201103
  Serious: No
  Sender: FDA-Public Use
  Company Number: AU-BIOGEN-2020BI00847804

PATIENT
  Age: 32 Year
  Sex: Female

DRUGS (1)
  1. TYSABRI [Suspect]
     Active Substance: NATALIZUMAB
     Indication: MULTIPLE SCLEROSIS
     Route: 042
     Dates: start: 20200225

REACTIONS (11)
  - Infusion site bruising [Unknown]
  - Headache [Recovered/Resolved]
  - Paraesthesia [Not Recovered/Not Resolved]
  - Myalgia [Recovered/Resolved]
  - Muscle tightness [Unknown]
  - Joint stiffness [Recovered/Resolved]
  - Pain in jaw [Recovered/Resolved]
  - Vertigo [Unknown]
  - Multiple sclerosis relapse [Unknown]
  - Trismus [Recovered/Resolved]
  - Joint noise [Recovered/Resolved]

NARRATIVE: CASE EVENT DATE: 20200314
